FAERS Safety Report 16246218 (Version 2)
Quarter: 2019Q2

REPORT INFORMATION
  Report Type: Spontaneous
  Country: US (occurrence: US)
  Receive Date: 20190426
  Receipt Date: 20190624
  Transmission Date: 20190711
  Serious: Yes (Hospitalization)
  Sender: FDA-Public Use
  Company Number: US-CELGENEUS-USA-20190409246

PATIENT
  Age: 65 Year
  Sex: Male
  Weight: 89.44 kg

DRUGS (21)
  1. ABRAXANE [Suspect]
     Active Substance: PACLITAXEL
     Indication: DUCTAL ADENOCARCINOMA OF PANCREAS
     Dosage: 125 MILLIGRAM/SQ. METER
     Route: 041
     Dates: start: 20190131, end: 20190131
  2. ABRAXANE [Suspect]
     Active Substance: PACLITAXEL
     Indication: DUCTAL ADENOCARCINOMA OF PANCREAS
     Dosage: 125 MILLIGRAM/SQ. METER
     Route: 041
     Dates: start: 20190314, end: 20190314
  3. ABRAXANE [Suspect]
     Active Substance: PACLITAXEL
     Indication: DUCTAL ADENOCARCINOMA OF PANCREAS
     Dosage: 115 MILLIGRAM/SQ. METER
     Route: 041
     Dates: start: 20190404, end: 20190404
  4. MEDI4736 (DURVALUMAB) [Concomitant]
     Active Substance: DURVALUMAB
     Indication: DUCTAL ADENOCARCINOMA OF PANCREAS
     Dosage: 3000 MILLIGRAM
     Route: 041
     Dates: start: 20190131, end: 20190131
  5. GEMCITABINE [Concomitant]
     Active Substance: GEMCITABINE\GEMCITABINE HYDROCHLORIDE
     Indication: DUCTAL ADENOCARCINOMA OF PANCREAS
     Dosage: 1000 MILLIGRAM/SQ. METER
     Route: 041
     Dates: start: 20190207, end: 20190207
  6. GEMCITABINE [Concomitant]
     Active Substance: GEMCITABINE\GEMCITABINE HYDROCHLORIDE
     Indication: DUCTAL ADENOCARCINOMA OF PANCREAS
     Dosage: 1000 MILLIGRAM/SQ. METER
     Route: 041
     Dates: start: 20190214, end: 20190214
  7. MEDI4736 (DURVALUMAB) [Concomitant]
     Active Substance: DURVALUMAB
     Indication: DUCTAL ADENOCARCINOMA OF PANCREAS
     Route: 041
     Dates: start: 20190314, end: 20190314
  8. ABRAXANE [Suspect]
     Active Substance: PACLITAXEL
     Indication: DUCTAL ADENOCARCINOMA OF PANCREAS
     Dosage: 125 MILLIGRAM/SQ. METER
     Route: 041
     Dates: start: 20190214, end: 20190214
  9. ABRAXANE [Suspect]
     Active Substance: PACLITAXEL
     Indication: DUCTAL ADENOCARCINOMA OF PANCREAS
     Dosage: 125 MILLIGRAM/SQ. METER
     Route: 041
     Dates: start: 20190228, end: 20190228
  10. GEMCITABINE [Concomitant]
     Active Substance: GEMCITABINE\GEMCITABINE HYDROCHLORIDE
     Indication: DUCTAL ADENOCARCINOMA OF PANCREAS
     Dosage: 1000 MILLIGRAM/SQ. METER
     Route: 041
     Dates: start: 20190307, end: 20190307
  11. MEDI4736 (DURVALUMAB) [Concomitant]
     Active Substance: DURVALUMAB
     Indication: DUCTAL ADENOCARCINOMA OF PANCREAS
     Dosage: 3000 MILLIGRAM
     Route: 041
     Dates: start: 20190214, end: 20190214
  12. GEMCITABINE [Concomitant]
     Active Substance: GEMCITABINE\GEMCITABINE HYDROCHLORIDE
     Indication: DUCTAL ADENOCARCINOMA OF PANCREAS
     Dosage: 1000 MILLIGRAM/SQ. METER
     Route: 041
     Dates: start: 20190131, end: 20190131
  13. GEMCITABINE [Concomitant]
     Active Substance: GEMCITABINE\GEMCITABINE HYDROCHLORIDE
     Indication: DUCTAL ADENOCARCINOMA OF PANCREAS
     Dosage: 1000 MILLIGRAM/SQ. METER
     Route: 041
     Dates: start: 20190314, end: 20190314
  14. ABRAXANE [Suspect]
     Active Substance: PACLITAXEL
     Indication: DUCTAL ADENOCARCINOMA OF PANCREAS
     Dosage: 125 MILLIGRAM/SQ. METER
     Route: 041
     Dates: start: 20190328, end: 20190328
  15. ABRAXANE [Suspect]
     Active Substance: PACLITAXEL
     Indication: DUCTAL ADENOCARCINOMA OF PANCREAS
     Dosage: 125 MILLIGRAM/SQ. METER
     Route: 041
     Dates: start: 20190307, end: 20190307
  16. MEDI4736 (DURVALUMAB) [Concomitant]
     Active Substance: DURVALUMAB
     Indication: DUCTAL ADENOCARCINOMA OF PANCREAS
     Dosage: 3000 MILLIGRAM
     Route: 041
     Dates: start: 20190328, end: 20190328
  17. GEMCITABINE [Concomitant]
     Active Substance: GEMCITABINE\GEMCITABINE HYDROCHLORIDE
     Indication: DUCTAL ADENOCARCINOMA OF PANCREAS
     Dosage: 1000 MILLIGRAM/SQ. METER
     Route: 041
     Dates: start: 20190328, end: 20190328
  18. ABRAXANE [Suspect]
     Active Substance: PACLITAXEL
     Indication: DUCTAL ADENOCARCINOMA OF PANCREAS
     Dosage: 125 MILLIGRAM/SQ. METER
     Route: 041
     Dates: start: 20190207, end: 20190207
  19. GEMCITABINE [Concomitant]
     Active Substance: GEMCITABINE\GEMCITABINE HYDROCHLORIDE
     Indication: DUCTAL ADENOCARCINOMA OF PANCREAS
     Dosage: 1000 MILLIGRAM/SQ. METER
     Route: 041
     Dates: start: 20190228, end: 20190228
  20. MEDI4736 (DURVALUMAB) [Concomitant]
     Active Substance: DURVALUMAB
     Indication: DUCTAL ADENOCARCINOMA OF PANCREAS
     Dosage: 3000 MILLIGRAM
     Route: 041
     Dates: start: 20190228, end: 20190228
  21. GEMCITABINE [Concomitant]
     Active Substance: GEMCITABINE\GEMCITABINE HYDROCHLORIDE
     Indication: DUCTAL ADENOCARCINOMA OF PANCREAS
     Dosage: 1000 MILLIGRAM/SQ. METER
     Route: 041
     Dates: start: 20190404, end: 20190404

REACTIONS (1)
  - Dehydration [Recovered/Resolved]

NARRATIVE: CASE EVENT DATE: 20190414
